FAERS Safety Report 23554406 (Version 3)
Quarter: 2024Q2

REPORT INFORMATION
  Report Type: Spontaneous
  Country: CN (occurrence: CN)
  Receive Date: 20240222
  Receipt Date: 20240430
  Transmission Date: 20240716
  Serious: Yes (Hospitalization, Other)
  Sender: FDA-Public Use
  Company Number: CN-PFIZER INC-PV202400023707

PATIENT
  Age: 9 Year
  Sex: Female
  Weight: 31 kg

DRUGS (2)
  1. METHOTREXATE SODIUM [Suspect]
     Active Substance: METHOTREXATE SODIUM
     Indication: Acute lymphocytic leukaemia
     Dosage: 5.35G (CONTINUOUS 24 HOURS, 10% OF TOTAL FOR FIRST 0.5 HOURS, 90% OF TOTAL FOR NEXT 23.5 HOURS)
     Route: 041
     Dates: start: 20240129, end: 20240210
  2. MERCAPTOPURINE [Concomitant]
     Active Substance: MERCAPTOPURINE
     Indication: Acute lymphocytic leukaemia
     Dosage: 16.5 MG, QN
     Route: 048
     Dates: start: 202401

REACTIONS (11)
  - Vomiting [Recovered/Resolved]
  - Rash [Recovered/Resolved]
  - Rash pruritic [Recovered/Resolved]
  - Pustule [Recovered/Resolved]
  - Myelosuppression [Recovering/Resolving]
  - Stomatitis [Recovering/Resolving]
  - Oral mucosa erosion [Recovering/Resolving]
  - Erythema [Recovering/Resolving]
  - Drug eruption [Recovering/Resolving]
  - Drug hypersensitivity [Recovering/Resolving]
  - Pyrexia [Recovering/Resolving]

NARRATIVE: CASE EVENT DATE: 20240201
